FAERS Safety Report 16317053 (Version 1)
Quarter: 2019Q2

REPORT INFORMATION
  Report Type: Spontaneous
  Country: US (occurrence: US)
  Receive Date: 20190515
  Receipt Date: 20190515
  Transmission Date: 20190711
  Serious: No
  Sender: FDA-Public Use
  Company Number: US-SA-2019SA128979

PATIENT
  Sex: Female

DRUGS (1)
  1. IMOGAM RABIES [Suspect]
     Active Substance: HUMAN RABIES VIRUS IMMUNE GLOBULIN
     Indication: IMMUNISATION
     Dosage: UNK UNK, UNK
     Route: 065

REACTIONS (2)
  - Exposure to communicable disease [Unknown]
  - Animal scratch [Unknown]
